APPROVED DRUG PRODUCT: CAPREOMYCIN SULFATE
Active Ingredient: CAPREOMYCIN SULFATE
Strength: EQ 1GM BASE/VIAL
Dosage Form/Route: INJECTABLE;INJECTION
Application: A202634 | Product #001
Applicant: PHARMOBEDIENT CONSULTING LLC
Approved: Nov 27, 2017 | RLD: No | RS: No | Type: DISCN